FAERS Safety Report 18444673 (Version 1)
Quarter: 2020Q4

REPORT INFORMATION
  Report Type: Spontaneous
  Country: US (occurrence: US)
  Receive Date: 20201030
  Receipt Date: 20201030
  Transmission Date: 20210114
  Serious: No
  Sender: FDA-Public Use
  Company Number: US-SA-2020SA306317

PATIENT

DRUGS (6)
  1. XIFAXAN [Concomitant]
     Active Substance: RIFAXIMIN
  2. VITAMIN D2 [Concomitant]
     Active Substance: ERGOCALCIFEROL
  3. NADOLOL. [Concomitant]
     Active Substance: NADOLOL
  4. PANTOPRAZOLE SODIUM. [Concomitant]
     Active Substance: PANTOPRAZOLE SODIUM
  5. LACTULOSE. [Concomitant]
     Active Substance: LACTULOSE
     Dosage: 10G/15ML SOLUTION
  6. DUPIXENT [Suspect]
     Active Substance: DUPILUMAB
     Indication: DERMATITIS ATOPIC
     Dosage: 300 MG, QOW
     Route: 058
     Dates: start: 202008

REACTIONS (1)
  - Liver transplant [Unknown]

NARRATIVE: CASE EVENT DATE: 20200917
